FAERS Safety Report 9358260 (Version 1)
Quarter: 2013Q2

REPORT INFORMATION
  Report Type: Spontaneous
  Country: IT (occurrence: FR)
  Receive Date: 20130620
  Receipt Date: 20130620
  Transmission Date: 20140414
  Serious: Yes (Hospitalization)
  Sender: FDA-Public Use
  Company Number: FR-FRI-1000045989

PATIENT
  Age: 70 Year
  Sex: Female

DRUGS (6)
  1. NEBIVOLOL [Suspect]
     Dosage: 5 MG
     Route: 048
  2. PLAQUENIL [Suspect]
     Indication: CUTANEOUS LUPUS ERYTHEMATOSUS
     Dosage: 400 MG
     Route: 048
     Dates: start: 2009, end: 20130221
  3. COVERSYL [Suspect]
     Dosage: 2.5 MG
     Route: 048
  4. PRAVASTATINE [Suspect]
     Dosage: 20 MG
     Route: 048
  5. OMEPRAZOLE [Suspect]
     Dosage: 20 MG
     Route: 048
  6. CORTANCYL [Suspect]
     Dosage: 8 MG
     Route: 048
     Dates: start: 2009

REACTIONS (1)
  - Peripheral sensory neuropathy [Not Recovered/Not Resolved]
